FAERS Safety Report 5369711-8 (Version None)
Quarter: 2007Q2

REPORT INFORMATION
  Report Type: 
  Country: None (occurrence: None)
  Receive Date: 20070621
  Receipt Date: 20070606
  Transmission Date: 20071010
  Serious: Yes (Hospitalization)
  Sender: FDA-Public Use
  Company Number: DSM-2007-00262

PATIENT
  Age: 74 Year
  Sex: Female
  Weight: 61 kg

DRUGS (2)
  1. CS-866CMB (HYDROCHLOROTHIAZIDE, OLMESARTAN MEDOXOMIL) (TABLET) (HYDROC [Suspect]
     Indication: HYPERTENSION
     Dosage: BLINDED (1 IN 1 D), ORAL
     Route: 048
     Dates: start: 20070510
  2. ZOLOFT (SERTRALINE HYDROCHLORIDE)  (SERTRALINE HYDROCHLORIDE) [Concomitant]

REACTIONS (5)
  - DEPRESSION [None]
  - DIZZINESS [None]
  - DRUG INEFFECTIVE [None]
  - FALL [None]
  - NAUSEA [None]
